FAERS Safety Report 7540100-0 (Version None)
Quarter: 2011Q2

REPORT INFORMATION
  Report Type: 
  Country: None (occurrence: None)
  Receive Date: 20110603
  Receipt Date: 20110523
  Transmission Date: 20111010
  Serious: Yes (Hospitalization, Other)
  Sender: FDA-Public Use
  Company Number: 2011P1006752

PATIENT
  Sex: Male

DRUGS (1)
  1. FENTANYL [Suspect]
     Dates: start: 20110101

REACTIONS (4)
  - DRUG WITHDRAWAL SYNDROME [None]
  - MALAISE [None]
  - INFLUENZA LIKE ILLNESS [None]
  - REACTION TO DRUG EXCIPIENTS [None]
